FAERS Safety Report 5064444-X (Version None)
Quarter: 2006Q3

REPORT INFORMATION
  Report Type: 
  Country: None (occurrence: None)
  Receive Date: 20060728
  Receipt Date: 20060621
  Transmission Date: 20061208
  Serious: Yes (Other)
  Sender: FDA-Public Use
  Company Number: US-GILEAD-2006-0009773

PATIENT
  Age: 34 Year
  Sex: Female

DRUGS (2)
  1. VIREAD [Suspect]
     Indication: HIV INFECTION
     Route: 048
  2. KALETRA [Suspect]

REACTIONS (4)
  - DRUG EXPOSURE DURING PREGNANCY [None]
  - MATERNAL CONDITION AFFECTING FOETUS [None]
  - STILLBIRTH [None]
  - TWIN PREGNANCY [None]
